FAERS Safety Report 5101175-1 (Version None)
Quarter: 2006Q3

REPORT INFORMATION
  Report Type: 
  Country: None (occurrence: None)
  Receive Date: 20060731
  Receipt Date: 20060411
  Transmission Date: 20061208
  Serious: No
  Sender: FDA-Public Use
  Company Number: 2006PV011931

PATIENT
  Age: 41 Year
  Sex: Female
  Weight: 111.1313 kg

DRUGS (2)
  1. BYETTA [Suspect]
     Indication: INSULIN RESISTANT DIABETES
     Dosage: 5 MCG; BID; SC
     Route: 058
     Dates: start: 20050201, end: 20060301
  2. GLUCOPHAGE [Concomitant]

REACTIONS (5)
  - DECREASED APPETITE [None]
  - INJECTION SITE DISCOLOURATION [None]
  - INJECTION SITE URTICARIA [None]
  - MEDICATION ERROR [None]
  - WEIGHT DECREASED [None]
